FAERS Safety Report 4500538-2 (Version None)
Quarter: 2004Q4

REPORT INFORMATION
  Report Type: 
  Country: None (occurrence: None)
  Receive Date: 20041110
  Receipt Date: 20041029
  Transmission Date: 20050328
  Serious: Yes (Other)
  Sender: FDA-Public Use
  Company Number: HQWYE190501NOV04

PATIENT
  Age: 49 Year
  Sex: Female

DRUGS (3)
  1. EFFEXOR XR [Suspect]
     Indication: DEPRESSION
     Dosage: 450 MG 1X PER 1 DAY
  2. DIPHENHYDRAMINE HCL [Concomitant]
  3. ZYPREXA [Concomitant]

REACTIONS (1)
  - ROAD TRAFFIC ACCIDENT [None]
